FAERS Safety Report 8201515-0 (Version None)
Quarter: 2012Q1

REPORT INFORMATION
  Report Type: 
  Country: None (occurrence: None)
  Receive Date: 20120312
  Receipt Date: 20120301
  Transmission Date: 20120608
  Serious: Yes (Other)
  Sender: FDA-Public Use
  Company Number: US-GLAXOSMITHKLINE-A0968220A

PATIENT
  Age: 29 Year
  Sex: Female

DRUGS (7)
  1. VITAMIN D [Concomitant]
  2. MULTI-VITAMIN [Concomitant]
  3. LOVAZA [Concomitant]
  4. WELLBUTRIN SR [Suspect]
     Indication: DEPRESSION
     Dosage: 200MG PER DAY
     Route: 048
     Dates: start: 20110601
  5. SYNTHROID [Concomitant]
  6. BUPROPION HYDROCHLORIDE [Suspect]
     Indication: DEPRESSION
     Dosage: 200MG PER DAY
     Route: 048
     Dates: start: 19980101
  7. WELLBUTRIN XL [Suspect]
     Indication: DEPRESSION
     Dosage: 300MG UNKNOWN
     Route: 065

REACTIONS (10)
  - DRUG INEFFECTIVE [None]
  - DYSKINESIA [None]
  - ANGER [None]
  - AGITATION [None]
  - OEDEMA MOUTH [None]
  - RASH [None]
  - WRONG TECHNIQUE IN DRUG USAGE PROCESS [None]
  - ANAPHYLACTIC REACTION [None]
  - SWOLLEN TONGUE [None]
  - FLASHBACK [None]
